FAERS Safety Report 5448979-3 (Version None)
Quarter: 2007Q3

REPORT INFORMATION
  Report Type: 
  Country: None (occurrence: None)
  Receive Date: 20070911
  Receipt Date: 20070830
  Transmission Date: 20080115
  Serious: Yes (Hospitalization)
  Sender: FDA-Public Use
  Company Number: IT-ROCHE-514647

PATIENT
  Age: 68 Year
  Sex: Male

DRUGS (3)
  1. ROCEPHIN [Suspect]
     Dosage: FORM VIAL
     Route: 042
     Dates: start: 20070811, end: 20070822
  2. EPARGRISEOVIT [Suspect]
     Indication: LIVER DISORDER
     Dosage: FORM VIAL
     Route: 042
     Dates: start: 20070819, end: 20070822
  3. TRANSMETIL [Suspect]
     Indication: LIVER DISORDER
     Dosage: FORM VIAL
     Route: 042
     Dates: start: 20070816, end: 20070822

REACTIONS (2)
  - RASH [None]
  - TOXIC EPIDERMAL NECROLYSIS [None]
